FAERS Safety Report 21048813 (Version 1)
Quarter: 2022Q3

REPORT INFORMATION
  Report Type: Spontaneous
  Country: US (occurrence: US)
  Receive Date: 20220706
  Receipt Date: 20220706
  Transmission Date: 20221026
  Serious: No
  Sender: FDA-Public Use
  Company Number: US-JNJFOC-20220649673

PATIENT
  Age: 74 Year
  Sex: Female

DRUGS (2)
  1. WOMENS ROGAINE UNSCENTED [Suspect]
     Active Substance: MINOXIDIL
     Indication: Alopecia
     Dosage: MEASURED DIRECTLY INTO PALM AND THEN APPLIED ON THE TOP, SIDES AND IN FRONT OF SCALP
     Route: 061
     Dates: start: 202202
  2. WOMENS ROGAINE UNSCENTED [Suspect]
     Active Substance: MINOXIDIL
     Indication: Alopecia
     Dosage: SQUIRTED IN THE HAND AND APPLIED AT THE FRONT OF SCALP AND AT ONE TIME PUT IT ON THE BACK OF THE SCA
     Route: 061
     Dates: start: 20220622

REACTIONS (3)
  - Hair colour changes [Not Recovered/Not Resolved]
  - Product use in unapproved indication [Unknown]
  - Wrong technique in product usage process [Unknown]

NARRATIVE: CASE EVENT DATE: 20220101
